FAERS Safety Report 5779670-1 (Version None)
Quarter: 2008Q2

REPORT INFORMATION
  Report Type: 
  Country: None (occurrence: None)
  Receive Date: 20080617
  Receipt Date: 20080602
  Transmission Date: 20081010
  Serious: Yes (Hospitalization)
  Sender: FDA-Public Use
  Company Number: 2008001277

PATIENT
  Age: 78 Year
  Sex: Female

DRUGS (10)
  1. ERLOTINIB [Suspect]
     Indication: LUNG ADENOCARCINOMA
     Dosage: (150 MG, QD), ORAL
     Route: 048
     Dates: start: 20080331, end: 20080425
  2. IRESSA [Suspect]
     Indication: LUNG ADENOCARCINOMA
     Dosage: ORAL
     Route: 048
     Dates: start: 20050819, end: 20070620
  3. NIFEDIPINE [Concomitant]
  4. ONEALFA [Concomitant]
  5. MUCOSTA (REBAMIPIDE) [Concomitant]
  6. FAMOTIDINE [Concomitant]
  7. DEPAS (ETIZOLAM) [Concomitant]
  8. LASIX [Concomitant]
  9. FIRSTCIN (CEFOZOPRAN HYDROCHLORIDE) [Concomitant]
  10. LOXONIN (LOXOPROFEN SODIUM) [Concomitant]

REACTIONS (1)
  - ANAEMIA [None]
